FAERS Safety Report 13877626 (Version 2)
Quarter: 2017Q4

REPORT INFORMATION
  Report Type: Spontaneous
  Country: JP (occurrence: JP)
  Receive Date: 20170817
  Receipt Date: 20171216
  Transmission Date: 20180320
  Serious: Yes (Hospitalization)
  Sender: FDA-Public Use
  Company Number: JP-ABBVIE-17P-087-2071460-00

PATIENT
  Age: 55 Year
  Sex: Female

DRUGS (4)
  1. CLARITHROMYCIN. [Suspect]
     Active Substance: CLARITHROMYCIN
     Indication: HELICOBACTER INFECTION
     Dosage: UNK
     Route: 048
     Dates: start: 20160825, end: 20160831
  2. TAKECAB [Suspect]
     Active Substance: VONOPRAZAN FUMURATE
     Indication: HELICOBACTER INFECTION
     Dosage: UNK
     Route: 048
     Dates: start: 20160825, end: 20160831
  3. SAWACILLIN [Suspect]
     Active Substance: AMOXICILLIN
     Indication: HELICOBACTER INFECTION
     Dosage: UNK
     Route: 048
     Dates: start: 20160825, end: 20160831
  4. ALLEGRA [Concomitant]
     Active Substance: FEXOFENADINE HYDROCHLORIDE
     Indication: PRODUCT USED FOR UNKNOWN INDICATION
     Dosage: UNK
     Route: 048

REACTIONS (1)
  - Drug eruption [Recovering/Resolving]

NARRATIVE: CASE EVENT DATE: 20160901
